FAERS Safety Report 10156673 (Version 1)
Quarter: 2014Q2

REPORT INFORMATION
  Report Type: Spontaneous
  Country: US (occurrence: None)
  Receive Date: 20140506
  Receipt Date: 20140506
  Transmission Date: 20141212
  Serious: Yes (Hospitalization)
  Sender: FDA-Public Use
  Company Number: None

PATIENT
  Sex: Male

DRUGS (8)
  1. FLUCONAZOLE [Suspect]
     Indication: INFECTION
     Route: 042
     Dates: start: 20130323, end: 20130329
  2. BACTRACIN [Concomitant]
  3. CAFFEINE [Concomitant]
  4. CEFEPIME [Concomitant]
  5. FENTANYL [Concomitant]
  6. NYSTATIN [Concomitant]
  7. OXACILLIN [Concomitant]
  8. VANCOMYCIN [Concomitant]

REACTIONS (1)
  - Blood creatinine increased [None]
